FAERS Safety Report 25645963 (Version 1)
Quarter: 2025Q3

REPORT INFORMATION
  Report Type: Spontaneous
  Country: US (occurrence: US)
  Receive Date: 20250805
  Receipt Date: 20250805
  Transmission Date: 20251021
  Serious: Yes (Hospitalization, Other)
  Sender: ABBVIE
  Company Number: US-ABBVIE-6399419

PATIENT
  Age: 16 Month
  Sex: Male
  Weight: 2 kg

DRUGS (1)
  1. RINVOQ [Suspect]
     Active Substance: UPADACITINIB
     Indication: Maternal exposure timing unspecified

REACTIONS (7)
  - Premature baby [Unknown]
  - Ear infection [Recovered/Resolved]
  - Ear infection [Recovering/Resolving]
  - Ear infection [Recovered/Resolved]
  - Jaundice [Recovered/Resolved]
  - Eczema [Not Recovered/Not Resolved]
  - Foetal exposure during pregnancy [Unknown]

NARRATIVE: CASE EVENT DATE: 20240101
